FAERS Safety Report 4536879-2 (Version None)
Quarter: 2004Q4

REPORT INFORMATION
  Report Type: 
  Country: None (occurrence: None)
  Receive Date: 20041223
  Receipt Date: 20041216
  Transmission Date: 20050328
  Serious: Yes (Death)
  Sender: FDA-Public Use
  Company Number: GB-GLAXOSMITHKLINE-B0362060A

PATIENT
  Age: 37 Year
  Sex: Female
  Weight: 57.3 kg

DRUGS (4)
  1. SERETIDE [Suspect]
     Indication: ASTHMA
     Dates: start: 20040807, end: 20040812
  2. SALAMOL [Concomitant]
     Dates: start: 20040805
  3. ELOCON [Concomitant]
     Indication: ECZEMA
     Route: 061
     Dates: start: 20040805
  4. OILATUM [Concomitant]
     Indication: ECZEMA
     Route: 061

REACTIONS (2)
  - ASTHMA [None]
  - CONDITION AGGRAVATED [None]
